FAERS Safety Report 5532268-2 (Version None)
Quarter: 2007Q4

REPORT INFORMATION
  Report Type: 
  Country: None (occurrence: None)
  Receive Date: 20071203
  Receipt Date: 20071122
  Transmission Date: 20080405
  Serious: Yes (Death)
  Sender: FDA-Public Use
  Company Number: GB-JNJFOC-20071109539

PATIENT
  Age: 37 Year
  Sex: Male

DRUGS (5)
  1. INFLIXIMAB [Suspect]
     Route: 042
  2. INFLIXIMAB [Suspect]
     Indication: CROHN'S DISEASE
     Route: 042
  3. AZATHIOPRINE [Suspect]
     Indication: CROHN'S DISEASE
     Route: 048
  4. CERTOLIZUMAB PEGOL [Suspect]
     Indication: CROHN'S DISEASE
     Dosage: 3 DOSES TOTAL
     Route: 058
  5. HYDROCORTISONE [Concomitant]
     Dosage: 3 DOSES TOTAL
     Route: 042

REACTIONS (1)
  - GASTROINTESTINAL CANCER METASTATIC [None]
